FAERS Safety Report 4736179-1 (Version None)
Quarter: 2005Q3

REPORT INFORMATION
  Report Type: 
  Country: None (occurrence: None)
  Receive Date: 20050806
  Receipt Date: 20030528
  Transmission Date: 20060218
  Serious: No
  Sender: FDA-Public Use
  Company Number: PHEH2003US04417

PATIENT
  Age: 32 Year
  Sex: Female
  Weight: 104 kg

DRUGS (12)
  1. TEGRETOL-XR [Suspect]
     Indication: EPILEPSY
     Dosage: UNK,UNK
     Route: 048
     Dates: start: 20020101, end: 20030501
  2. TEGRETOL-XR [Suspect]
     Dosage: 3500 MG/DAY
     Dates: start: 20030501
  3. KEPPRA [Concomitant]
     Indication: CONVULSION
     Dosage: 3000 MG/DAY
     Dates: start: 20020301
  4. EFFEXOR [Concomitant]
     Indication: ANXIETY
     Dosage: 225 MG/DAY
     Route: 048
     Dates: start: 20020701
  5. ADDERALL 30 [Concomitant]
     Indication: ATTENTION DEFICIT/HYPERACTIVITY DISORDER
     Dosage: 40 MG/DAY
     Route: 048
     Dates: start: 20020101
  6. ZYRTEC [Concomitant]
     Indication: HYPERSENSITIVITY
     Dosage: 10 MG/DAY
     Route: 048
  7. SYNTHROID [Concomitant]
     Indication: HYPOTHYROIDISM
     Dosage: 0.05 MG/DAY
     Route: 048
  8. ORAL CONTRACEPTIVE NOS [Concomitant]
     Indication: ORAL CONTRACEPTION
     Route: 048
  9. ZONEGRAN [Concomitant]
  10. ATIVAN [Concomitant]
  11. TEGRETOL [Suspect]
     Indication: CONVULSION
     Dates: end: 19960101
  12. TEGRETOL [Suspect]

REACTIONS (12)
  - ANXIETY [None]
  - DEPRESSION [None]
  - DISTURBANCE IN ATTENTION [None]
  - DRUG EFFECT DECREASED [None]
  - DRUG LEVEL FLUCTUATING [None]
  - DRUG TOXICITY [None]
  - MYOCLONUS [None]
  - PARTIAL SEIZURES [None]
  - TACHYCARDIA [None]
  - THINKING ABNORMAL [None]
  - VAGAL NERVE STIMULATOR IMPLANTATION [None]
  - VISION BLURRED [None]
